FAERS Safety Report 11263516 (Version 1)
Quarter: 2015Q3

REPORT INFORMATION
  Report Type: Report from Study
  Country: US (occurrence: US)
  Receive Date: 20150713
  Receipt Date: 20150713
  Transmission Date: 20151125
  Serious: Yes (Hospitalization)
  Sender: FDA-Public Use
  Company Number: US-ROCHE-1602426

PATIENT
  Age: 52 Year
  Sex: Female
  Weight: 74.39 kg

DRUGS (5)
  1. PACLITAXEL. [Suspect]
     Active Substance: PACLITAXEL
     Indication: LUNG ADENOCARCINOMA
     Dosage: OVER 1 HOUR FROM CYCLE 1-7 OF CHEMORADIOTHERAPY?AND CYCLE 1 AND 2 OF CONSOLIDATION CHEMOTHERAPY
     Route: 042
     Dates: start: 20131223
  2. CARBOPLATIN. [Suspect]
     Active Substance: CARBOPLATIN
     Indication: LUNG ADENOCARCINOMA
     Dosage: OVER 1 HOUR FROM CYCLE 1-7 OF CHEMORADIOTHERAPY?AND CYCLE 1 AND 2 OF CONSOLIDATION CHEMOTHERAPY
     Route: 042
     Dates: start: 20131223
  3. BEVACIZUMAB [Suspect]
     Active Substance: BEVACIZUMAB
     Indication: LUNG ADENOCARCINOMA
     Dosage: ON DAY 1 OF CYCLE 1-34 OF MAINTAINANCE THERAPY
     Route: 042
  4. L-BLP25 [Suspect]
     Active Substance: TECEMOTIDE
     Indication: LUNG ADENOCARCINOMA
     Dosage: ON DAYS 1, 8, AND 15 OF COURSES 1 AND 2 AND ON DAY 1 OF EVERY OTHER COURSE BEGINNING IN COURSE 4 OF
     Route: 058
  5. CYCLOPHOSPHAMIDE. [Suspect]
     Active Substance: CYCLOPHOSPHAMIDE
     Indication: LUNG ADENOCARCINOMA
     Dosage: OVER 15-20 MINUTES, 3 DAYS BEFORE DAY 1 OF CYCLE1 OF MAINTAINANCE THERAPY
     Route: 042

REACTIONS (4)
  - Hypoalbuminaemia [Not Recovered/Not Resolved]
  - Pulmonary oedema [Not Recovered/Not Resolved]
  - Oedema peripheral [Not Recovered/Not Resolved]
  - Proteinuria [Not Recovered/Not Resolved]

NARRATIVE: CASE EVENT DATE: 20150623
